FAERS Safety Report 9879130 (Version 2)
Quarter: 2014Q1

REPORT INFORMATION
  Report Type: Spontaneous
  Country: US (occurrence: US)
  Receive Date: 20140206
  Receipt Date: 20140206
  Transmission Date: 20141002
  Serious: No
  Sender: FDA-Public Use
  Company Number: US-ALLERGAN-1313188US

PATIENT
  Age: 63 Year
  Sex: Female

DRUGS (1)
  1. BOTOX COSMETIC [Suspect]
     Indication: PRODUCT USED FOR UNKNOWN INDICATION
     Dosage: 16 UNITS, SINGLE
     Route: 030
     Dates: start: 20130816, end: 20130816

REACTIONS (1)
  - Therapeutic response decreased [Unknown]
